FAERS Safety Report 6467022-0 (Version None)
Quarter: 2009Q4

REPORT INFORMATION
  Report Type: 
  Country: None (occurrence: None)
  Receive Date: 20091202
  Receipt Date: 20091119
  Transmission Date: 20100525
  Serious: Yes (Other)
  Sender: FDA-Public Use
  Company Number: US-PFIZER INC-2009300913

PATIENT
  Age: 72 Year
  Sex: Female

DRUGS (14)
  1. BACITRACIN AND BACITRACIN ZINC [Suspect]
     Dosage: 150,000 U/L
  2. ACETYLSALICYLIC ACID [Concomitant]
  3. CARVEDILOL [Concomitant]
  4. LISINOPRIL [Concomitant]
  5. FUROSEMIDE [Concomitant]
  6. SIMVASTATIN [Concomitant]
  7. OMEPRAZOLE [Concomitant]
  8. SERTRALINE [Concomitant]
  9. VANCOMYCIN [Concomitant]
     Route: 042
  10. LEVOFLOXACIN [Concomitant]
     Route: 042
  11. PROPOFOL [Concomitant]
  12. FENTANYL [Concomitant]
  13. SUCCINYLCHOLINE CHLORIDE [Concomitant]
  14. LIDOCAINE [Concomitant]

REACTIONS (1)
  - ANAPHYLACTIC REACTION [None]
